FAERS Safety Report 12278159 (Version 13)
Quarter: 2020Q3

REPORT INFORMATION
  Report Type: Report from Study
  Country: US (occurrence: US)
  Receive Date: 20160418
  Receipt Date: 20200709
  Transmission Date: 20201102
  Serious: Yes (Other)
  Sender: FDA-Public Use
  Company Number: PHHY2015US005719

PATIENT
  Age: 46 Year
  Sex: Female

DRUGS (4)
  1. INFLUENZA VACCINE [Concomitant]
     Active Substance: INFLUENZA VIRUS VACCINE
     Indication: IMMUNISATION
     Dosage: UNK
     Route: 065
     Dates: start: 20151013, end: 20151013
  2. HCTZ [Concomitant]
     Active Substance: HYDROCHLOROTHIAZIDE
     Indication: PRODUCT USED FOR UNKNOWN INDICATION
     Dosage: 12.5 MG, QD
     Route: 065
     Dates: start: 20180806
  3. GILENYA [Suspect]
     Active Substance: FINGOLIMOD HYDROCHLORIDE
     Indication: MULTIPLE SCLEROSIS
     Dosage: UNK, QD
     Route: 048
  4. ZOSTER [Concomitant]
     Indication: PRODUCT USED FOR UNKNOWN INDICATION
     Dosage: UNK
     Route: 065
     Dates: start: 20181210, end: 20181210

REACTIONS (38)
  - Pain in extremity [Unknown]
  - Acrochordon [Unknown]
  - Herpes zoster [Not Recovered/Not Resolved]
  - Gastrointestinal disorder [Unknown]
  - Myopia [Not Recovered/Not Resolved]
  - Lymphocyte count decreased [Not Recovered/Not Resolved]
  - Urinary retention [Not Recovered/Not Resolved]
  - Alanine aminotransferase increased [Unknown]
  - Urinary hesitation [Recovered/Resolved]
  - Nausea [Recovered/Resolved]
  - Upper respiratory tract infection [Unknown]
  - Viral upper respiratory tract infection [Unknown]
  - Otitis externa fungal [Unknown]
  - Vertigo [Recovered/Resolved]
  - Constipation [Not Recovered/Not Resolved]
  - Astigmatism [Not Recovered/Not Resolved]
  - Ear pain [Unknown]
  - Muscle spasms [Unknown]
  - Dysplastic naevus [Recovered/Resolved]
  - Blood sodium decreased [Unknown]
  - Benign breast neoplasm [Unknown]
  - Peripheral coldness [Unknown]
  - Blood potassium decreased [Unknown]
  - Fall [Not Recovered/Not Resolved]
  - Presbyopia [Not Recovered/Not Resolved]
  - Urinary incontinence [Unknown]
  - Nausea [Not Recovered/Not Resolved]
  - Migraine [Unknown]
  - Hypertension [Not Recovered/Not Resolved]
  - Micturition urgency [Recovered/Resolved]
  - Arthralgia [Unknown]
  - Bradycardia [Not Recovered/Not Resolved]
  - Pyrexia [Unknown]
  - Vertigo [Not Recovered/Not Resolved]
  - Dysaesthesia [Unknown]
  - Menopause [Not Recovered/Not Resolved]
  - Hypoaesthesia [Unknown]
  - Hypoaesthesia [Unknown]

NARRATIVE: CASE EVENT DATE: 20121002
